FAERS Safety Report 4964252-1 (Version None)
Quarter: 2006Q1

REPORT INFORMATION
  Report Type: 
  Country: None (occurrence: None)
  Receive Date: 20060331
  Receipt Date: 20060313
  Transmission Date: 20060701
  Serious: No
  Sender: FDA-Public Use
  Company Number: US200602000113

PATIENT
  Age: 7 Year
  Sex: Male
  Weight: 18.4 kg

DRUGS (1)
  1. STRATTERA [Suspect]
     Indication: WILLIAMS SYNDROME
     Dosage: 25 MG, DAILY 1/D
     Dates: start: 20041116

REACTIONS (1)
  - BLOOD ALKALINE PHOSPHATASE INCREASED [None]
